FAERS Safety Report 4602893-1 (Version None)
Quarter: 2005Q1

REPORT INFORMATION
  Report Type: 
  Country: None (occurrence: None)
  Receive Date: 20050309
  Receipt Date: 20050302
  Transmission Date: 20050727
  Serious: Yes (Other)
  Sender: FDA-Public Use
  Company Number: GB-GLAXOSMITHKLINE-B0373444A

PATIENT

DRUGS (1)
  1. IMIGRAN [Suspect]
     Route: 065

REACTIONS (1)
  - DEPENDENCE [None]
